FAERS Safety Report 5306510-7 (Version None)
Quarter: 2007Q2

REPORT INFORMATION
  Report Type: 
  Country: None (occurrence: None)
  Receive Date: 20070417
  Receipt Date: 20070403
  Transmission Date: 20071010
  Serious: Yes (Death)
  Sender: FDA-Public Use
  Company Number: 070410-0000376

PATIENT
  Age: 30 Month
  Sex: Male

DRUGS (6)
  1. DACTINOMYCIN [Suspect]
     Indication: RHABDOMYOSARCOMA
  2. IFOSFAMIDE [Suspect]
     Indication: RHABDOMYOSARCOMA
  3. VINCRISTINE [Suspect]
     Indication: RHABDOMYOSARCOMA
  4. CARBOPLATIN [Suspect]
     Indication: RHABDOMYOSARCOMA
  5. EPIRUBICIN [Suspect]
     Indication: RHABDOMYOSARCOMA
  6. ETOPOSIDE [Suspect]
     Indication: RHABDOMYOSARCOMA

REACTIONS (8)
  - COUGH [None]
  - DRUG INTERACTION [None]
  - DYSPNOEA [None]
  - FEBRILE NEUTROPENIA [None]
  - INTERSTITIAL LUNG DISEASE [None]
  - LUNG INFILTRATION [None]
  - PNEUMONIA [None]
  - PNEUMONITIS [None]
